FAERS Safety Report 5595052-X (Version None)
Quarter: 2008Q1

REPORT INFORMATION
  Report Type: 
  Country: None (occurrence: None)
  Receive Date: 20080117
  Receipt Date: 20080107
  Transmission Date: 20080703
  Serious: Yes (Death)
  Sender: FDA-Public Use
  Company Number: US-ROCHE-539011

PATIENT
  Age: 65 Year
  Sex: Female
  Weight: 81.9 kg

DRUGS (8)
  1. MYCOPHENOLATE MOFETIL [Suspect]
     Indication: LIVER TRANSPLANT
     Route: 048
     Dates: start: 20070405, end: 20071115
  2. TACROLIMUS [Suspect]
     Indication: LIVER TRANSPLANT
     Route: 048
     Dates: start: 20070412, end: 20071217
  3. LASIX [Concomitant]
     Dates: start: 20070412, end: 20071218
  4. NEXIUM [Concomitant]
     Dates: start: 20070412, end: 20071218
  5. TOPROL-XL [Concomitant]
     Dates: start: 20070412, end: 20071218
  6. AMARYL [Concomitant]
     Dates: start: 20070412, end: 20071218
  7. NORVASC [Concomitant]
     Dates: start: 20070412, end: 20071218
  8. NEXAVAR [Concomitant]
     Dates: start: 20071115, end: 20071218

REACTIONS (1)
  - DEATH [None]
